FAERS Safety Report 7478662-4 (Version None)
Quarter: 2011Q2

REPORT INFORMATION
  Report Type: 
  Country: None (occurrence: None)
  Receive Date: 20110511
  Receipt Date: 20110511
  Transmission Date: 20111010
  Serious: Yes (Other)
  Sender: FDA-Public Use
  Company Number: None

PATIENT
  Sex: Female

DRUGS (1)
  1. EPINEPHRINE [Suspect]
     Indication: HYPERSENSITIVITY
     Dosage: 0.3 MG NCE IM (2 DOSES)
     Route: 030
     Dates: start: 20110409, end: 20110409

REACTIONS (2)
  - NEEDLE ISSUE [None]
  - DEVICE COMPONENT ISSUE [None]
